FAERS Safety Report 8178909-5 (Version None)
Quarter: 2012Q1

REPORT INFORMATION
  Report Type: 
  Country: None (occurrence: None)
  Receive Date: 20120302
  Receipt Date: 20120223
  Transmission Date: 20120608
  Serious: No
  Sender: FDA-Public Use
  Company Number: US-BIOGENIDEC-2011BI036860

PATIENT
  Age: 41 Year
  Sex: Female

DRUGS (5)
  1. TYSABRI [Suspect]
     Indication: MULTIPLE SCLEROSIS
     Route: 042
  2. AVONEX [Concomitant]
     Indication: MULTIPLE SCLEROSIS
     Route: 030
  3. AVONEX [Concomitant]
     Route: 030
  4. TYSABRI [Suspect]
     Route: 042
     Dates: start: 20110826, end: 20110926
  5. AVONEX [Concomitant]
     Route: 030

REACTIONS (6)
  - DIZZINESS [None]
  - FEELING COLD [None]
  - HYPERSENSITIVITY [None]
  - INFUSION RELATED REACTION [None]
  - HEADACHE [None]
  - CHEST DISCOMFORT [None]
